FAERS Safety Report 5944545-1 (Version None)
Quarter: 2008Q4

REPORT INFORMATION
  Report Type: 
  Country: None (occurrence: None)
  Receive Date: 20081107
  Receipt Date: 20080904
  Transmission Date: 20090506
  Serious: Yes (Other)
  Sender: FDA-Public Use
  Company Number: FR-BAYER-200829678GPV

PATIENT
  Sex: Male

DRUGS (1)
  1. CHOLSTAT [Suspect]
     Indication: DRUG USE FOR UNKNOWN INDICATION
     Route: 065

REACTIONS (3)
  - BLINDNESS [None]
  - PAIN [None]
  - UNEVALUABLE EVENT [None]
